FAERS Safety Report 4774713-6 (Version None)
Quarter: 2005Q3

REPORT INFORMATION
  Report Type: 
  Country: None (occurrence: None)
  Receive Date: 20050921
  Receipt Date: 20050825
  Transmission Date: 20060218
  Serious: Yes (Congenital Anomaly)
  Sender: FDA-Public Use
  Company Number: US-GLAXOSMITHKLINE-A0572244A

PATIENT
  Sex: Male
  Weight: 2.6 kg

DRUGS (3)
  1. RETROVIR [Suspect]
     Indication: HIV INFECTION
  2. VIDEX [Concomitant]
     Indication: HIV INFECTION
  3. VIRACEPT [Concomitant]
     Indication: HIV INFECTION

REACTIONS (5)
  - DRUG EXPOSURE DURING PREGNANCY [None]
  - HYDRONEPHROSIS [None]
  - HYPONATRAEMIA [None]
  - HYPOSPADIAS [None]
  - NEONATAL HYPONATRAEMIA [None]
